FAERS Safety Report 23699160 (Version 4)
Quarter: 2024Q2

REPORT INFORMATION
  Report Type: Spontaneous
  Country: US (occurrence: US)
  Receive Date: 20240402
  Receipt Date: 20240528
  Transmission Date: 20240716
  Serious: Yes (Death, Hospitalization, Other)
  Sender: FDA-Public Use
  Company Number: US-GILEAD-2024-0667718

PATIENT
  Age: 25 Year
  Sex: Male
  Weight: 103.3 kg

DRUGS (58)
  1. YESCARTA [Suspect]
     Active Substance: AXICABTAGENE CILOLEUCEL
     Indication: Diffuse large B-cell lymphoma
     Dosage: 813 (TOTAL)
     Route: 042
     Dates: start: 20240301, end: 20240301
  2. ZOSYN [Suspect]
     Active Substance: PIPERACILLIN SODIUM\TAZOBACTAM SODIUM
     Indication: Cholecystitis
     Dosage: 4.5 MG
     Route: 042
     Dates: start: 20240327, end: 20240331
  3. DRONABINOL [Concomitant]
     Active Substance: DRONABINOL
  4. FENTANYL [Concomitant]
     Active Substance: FENTANYL\FENTANYL CITRATE
  5. GABAPENTIN [Concomitant]
     Active Substance: GABAPENTIN
  6. HYDROMORPHONE [Concomitant]
     Active Substance: HYDROMORPHONE
     Dosage: 1 MG Q4H IV PUSH
  7. HYDROMORPHONE [Concomitant]
     Active Substance: HYDROMORPHONE
     Dosage: 0.2 MG DAY OF TX IV PUSH
  8. LIDOCAINE [Concomitant]
     Active Substance: LIDOCAINE
     Dosage: 10 ML Q6H SWISH + SPIT
  9. LIDOCAINE [Concomitant]
     Active Substance: LIDOCAINE
     Dosage: 1 PATCH Q24H TRANSDERMAL
  10. LIDOCAINE [Concomitant]
     Active Substance: LIDOCAINE
     Dosage: PATCH OFF 1 PATCH_OFF ONCE TRANSDERMAL
  11. LEVOTHYROXINE [Concomitant]
     Active Substance: LEVOTHYROXINE\LEVOTHYROXINE SODIUM
     Dosage: 25 MCG DAILY PO
  12. MELATONIN [Concomitant]
     Active Substance: MELATONIN
     Dosage: 10 MG QHS PO
  13. MEROPENEM [Concomitant]
     Active Substance: MEROPENEM
  14. METOPROLOL SUCCINATE [Concomitant]
     Active Substance: METOPROLOL SUCCINATE
  15. MICONAZOLE [Concomitant]
     Active Substance: MICONAZOLE
  16. MUPIROCIN [Concomitant]
     Active Substance: MUPIROCIN
  17. OXYBUTYNIN [Concomitant]
     Active Substance: OXYBUTYNIN\OXYBUTYNIN CHLORIDE
     Dosage: 5 MG BID PO
  18. PANTOPRAZOLE [Concomitant]
     Active Substance: PANTOPRAZOLE
     Dosage: 40 MG DAILY PO
  19. POSACONAZOLE [Concomitant]
     Active Substance: POSACONAZOLE
     Dosage: 3 TAB 300 MG QNOON PO
  20. SENNOSIDES A AND B [Concomitant]
     Active Substance: SENNOSIDES A AND B
     Dosage: 17.2 MG BID PO
  21. SUCRALFATE [Concomitant]
     Active Substance: SUCRALFATE
  22. DEXMEDETOMIDINE [Concomitant]
     Active Substance: DEXMEDETOMIDINE
  23. DUONEB [Concomitant]
     Active Substance: ALBUTEROL SULFATE\IPRATROPIUM BROMIDE
     Dosage: 3 ML Q4H NEB
  24. GUAIFENESIN [Concomitant]
     Active Substance: GUAIFENESIN
  25. HEPARIN SODIUM [Concomitant]
     Active Substance: HEPARIN SODIUM
     Dosage: 3 ML PRE EVENT INTRACATHETER 180 ML/HR
  26. ALUMINIUM HYDROXIDE;DIPHENHYDRAMINE HYDROCHLORIDE;LIDOCAINE HYDROCHLOR [Concomitant]
  27. ONDANSETRON [Concomitant]
     Active Substance: ONDANSETRON
  28. MIRALAX [Concomitant]
     Active Substance: POLYETHYLENE GLYCOL 3350
     Dosage: 17 G BID PO
  29. ALLOPURINOL [Concomitant]
     Active Substance: ALLOPURINOL
     Dosage: UNK
     Dates: start: 20240301, end: 20240331
  30. ALLOPURINOL [Concomitant]
     Active Substance: ALLOPURINOL
     Dosage: 2.5 MG BID_AC PO
  31. OMEPRAZOLE [Concomitant]
     Active Substance: DONEPEZIL HYDROCHLORIDE\OMEPRAZOLE\OMEPRAZOLE MAGNESIUM
     Dosage: UNK
     Dates: start: 20240301, end: 20240331
  32. ZYRTEC [Concomitant]
     Active Substance: CETIRIZINE HYDROCHLORIDE
     Dosage: 10 MG PRE EVENT PO PRN
  33. ROBITUSSIN [GUAIFENESIN;PSEUDOEPHEDRINE HYDROCHLORIDE] [Concomitant]
     Dosage: 200 MG Q4H PO PRN
  34. OXYCODONE [Concomitant]
     Active Substance: OXYCODONE\OXYCODONE HYDROCHLORIDE
     Dosage: 5 MG Q4H PO
  35. EPINEPHRINE [Concomitant]
     Active Substance: EPINEPHRINE
     Dosage: 0.3 MG DAY OF TX IM
  36. SODIUM CHLORIDE [Concomitant]
     Active Substance: SODIUM CHLORIDE
     Dosage: 0.9% (NS BOLUS) 1,000 ML DAY OF TX IV
  37. SODIUM CHLORIDE [Concomitant]
     Active Substance: SODIUM CHLORIDE
     Dosage: PC AND HS SWISH + SPIT
  38. TYLENOL [Concomitant]
     Active Substance: ACETAMINOPHEN
     Dosage: 650 MG DAY OF TX PO
  39. TYLENOL [Concomitant]
     Active Substance: ACETAMINOPHEN
     Dosage: 650 MG PRE EVENT PO
  40. TYLENOL [Concomitant]
     Active Substance: ACETAMINOPHEN
     Dosage: 650 MG Q8H PO
  41. BUPRENORPHINE [Concomitant]
     Active Substance: BUPRENORPHINE
     Dosage: 1 MG BID SL
  42. DEXAMETHASONE [Concomitant]
     Active Substance: DEXAMETHASONE
     Dosage: 10 MG DAY OF TX IV PUSH
  43. ACETAMINOPHEN\DIPHENHYDRAMINE\PHENYLPROPANOLAMINE [Concomitant]
     Active Substance: ACETAMINOPHEN\DIPHENHYDRAMINE\PHENYLPROPANOLAMINE
     Dosage: 50 MG PRE EVENT IV 6 ML/HR
  44. ACETAMINOPHEN\DIPHENHYDRAMINE\PHENYLPROPANOLAMINE [Concomitant]
     Active Substance: ACETAMINOPHEN\DIPHENHYDRAMINE\PHENYLPROPANOLAMINE
     Dosage: 25 MG DAY OF TX IV 3 ML/HR
  45. DOCUSATE SODIUM [Concomitant]
     Active Substance: DOCUSATE SODIUM
     Dosage: 100 MG BID PO
  46. NEUPOGEN [Concomitant]
     Active Substance: FILGRASTIM
     Dosage: 0.8 ML 480 MCG DAILY SUBQ
  47. FOLIC ACID [Concomitant]
     Active Substance: FOLIC ACID
     Dosage: 1 MG DAILY PO
  48. IMMUNE GLOBULIN NOS [Concomitant]
     Active Substance: IMMUNE GLOBULIN NOS
     Dosage: 400 ML 40 G Q24H IV 0 ML/HR
  49. MILK OF MAGNESIA [Concomitant]
     Active Substance: MAGNESIUM HYDROXIDE
     Dosage: TID PO
  50. PIPERACILLIN SODIUM\TAZOBACTAM SODIUM [Concomitant]
     Active Substance: PIPERACILLIN SODIUM\TAZOBACTAM SODIUM
     Dosage: 100 ML 4.5 G Q8H IV 25 ML/HR
  51. PIPERACILLIN SODIUM\TAZOBACTAM SODIUM [Concomitant]
     Active Substance: PIPERACILLIN SODIUM\TAZOBACTAM SODIUM
     Dosage: 100 ML 4.5 G ONCE IV 200 ML/HR
  52. PREDNISONE [Concomitant]
     Active Substance: PREDNISONE
     Dosage: 20 MG QPM PO
  53. PREDNISONE [Concomitant]
     Active Substance: PREDNISONE
     Dosage: 30 MG QAM PO
  54. PROCHLORPERAZINE EDISYLATE [Concomitant]
     Active Substance: PROCHLORPERAZINE EDISYLATE
     Dosage: 10 MG DAY OF TX IV PUSH
  55. CARAFATE [Concomitant]
     Active Substance: SUCRALFATE
     Dosage: 1,000 MG BID PO
  56. VALIUM [Concomitant]
     Active Substance: DIAZEPAM
     Dosage: 5 MG ONCE PO
  57. OMNIPAQUE [Concomitant]
     Active Substance: IOHEXOL
     Dosage: 1,000 ML ONCE PO
  58. ZOFRAN [Concomitant]
     Active Substance: ONDANSETRON HYDROCHLORIDE
     Dosage: 4 MG ONCE IV PUSH

REACTIONS (10)
  - Cerebral haemorrhage [Fatal]
  - Subarachnoid haemorrhage [Fatal]
  - Headache [Fatal]
  - Cholecystitis [Fatal]
  - Pancytopenia [Fatal]
  - Neurotoxicity [Fatal]
  - Immune effector cell-associated neurotoxicity syndrome [Fatal]
  - Seizure [Recovered/Resolved]
  - Thrombocytopenia [Unknown]
  - Cytokine release syndrome [Unknown]

NARRATIVE: CASE EVENT DATE: 20240301
